FAERS Safety Report 9439789 (Version 2)
Quarter: 2013Q3

REPORT INFORMATION
  Report Type: Spontaneous
  Country: IE (occurrence: IE)
  Receive Date: 20130805
  Receipt Date: 20130919
  Transmission Date: 20140515
  Serious: Yes (Other)
  Sender: FDA-Public Use
  Company Number: IE-JNJFOC-20130718243

PATIENT
  Age: 75 Year
  Sex: Male

DRUGS (8)
  1. XARELTO [Suspect]
     Indication: PRODUCT USED FOR UNKNOWN INDICATION
     Route: 048
     Dates: start: 20130418, end: 20130701
  2. RAMIPRIL [Concomitant]
     Route: 065
  3. GALFER [Concomitant]
     Indication: IRON DEFICIENCY
     Route: 065
  4. NUPRIN [Concomitant]
     Route: 065
  5. ATORVASTATIN [Concomitant]
     Route: 065
  6. ESOMEPRAZOLE [Concomitant]
     Route: 065
  7. HALCION [Concomitant]
     Indication: INSOMNIA
     Route: 065
  8. DESLORATADINE [Concomitant]
     Route: 065

REACTIONS (4)
  - Local swelling [Recovering/Resolving]
  - Skin discolouration [Recovering/Resolving]
  - Blister [Recovering/Resolving]
  - Rash macular [Recovering/Resolving]
